FAERS Safety Report 7013748-X (Version None)
Quarter: 2010Q3

REPORT INFORMATION
  Report Type: 
  Country: None (occurrence: None)
  Receive Date: 20100924
  Receipt Date: 20100915
  Transmission Date: 20110219
  Serious: No
  Sender: FDA-Public Use
  Company Number: US-PFIZER INC-2010117176

PATIENT
  Sex: Female
  Weight: 79.365 kg

DRUGS (2)
  1. GEODON [Suspect]
     Indication: BIPOLAR DISORDER
     Dosage: UNK
     Route: 048
  2. TEGRETOL [Concomitant]
     Indication: EPILEPSY
     Dosage: UNK

REACTIONS (4)
  - FEELING ABNORMAL [None]
  - MALAISE [None]
  - SOMNOLENCE [None]
  - WRONG TECHNIQUE IN DRUG USAGE PROCESS [None]
